FAERS Safety Report 19278381 (Version 1)
Quarter: 2021Q2

REPORT INFORMATION
  Report Type: Spontaneous
  Country: US (occurrence: US)
  Receive Date: 20210520
  Receipt Date: 20210520
  Transmission Date: 20210717
  Serious: No
  Sender: FDA-Public Use
  Company Number: None

PATIENT
  Age: 87 Year
  Sex: Male
  Weight: 74 kg

DRUGS (1)
  1. BACLOFEN (BACLOFEN 20MG TAB) [Suspect]
     Active Substance: BACLOFEN
     Indication: BACK PAIN
     Route: 048
     Dates: start: 20210403, end: 20210408

REACTIONS (3)
  - Toxic encephalopathy [None]
  - Confusional state [None]
  - Mental status changes [None]

NARRATIVE: CASE EVENT DATE: 20210404
